FAERS Safety Report 8228616-5 (Version None)
Quarter: 2012Q1

REPORT INFORMATION
  Report Type: 
  Country: None (occurrence: None)
  Receive Date: 20120322
  Receipt Date: 20110707
  Transmission Date: 20120608
  Serious: Yes (Hospitalization)
  Sender: FDA-Public Use
  Company Number: US-BRISTOL-MYERS SQUIBB COMPANY-15587645

PATIENT
  Age: 70 Year
  Sex: Male
  Weight: 89 kg

DRUGS (11)
  1. TAMSULOSIN HCL [Concomitant]
  2. ASPIRIN [Concomitant]
     Dosage: 1DF:325UNS
  3. BENADRYL [Concomitant]
     Indication: PREMEDICATION
     Route: 042
  4. ERBITUX [Suspect]
     Indication: LUNG SQUAMOUS CELL CARCINOMA STAGE UNSPECIFIED
     Dosage: ON 21JAN11 760MG,LOT# 09C00654B EXP DATE FEB13,09C005B EXP DATE NOV12,INF 6TH
     Dates: start: 20110113
  5. OXYCODONE HCL [Concomitant]
     Indication: PAIN
     Dosage: 1-2 EVERY 4 HRS PRN,5/325
     Route: 048
  6. DECADRON [Concomitant]
     Indication: PREMEDICATION
     Route: 048
  7. METOPROLOL SUCCINATE [Concomitant]
  8. LOPRESSOR [Concomitant]
  9. NAPROXEN [Concomitant]
  10. APAP TAB [Concomitant]
     Route: 048
  11. ALOXI [Concomitant]
     Indication: PREMEDICATION
     Route: 042

REACTIONS (1)
  - INFUSION RELATED REACTION [None]
